FAERS Safety Report 7990716-2 (Version None)
Quarter: 2011Q4

REPORT INFORMATION
  Report Type: 
  Country: None (occurrence: None)
  Receive Date: 20111219
  Receipt Date: 20111212
  Transmission Date: 20120403
  Serious: Yes (Life-Threatening, Hospitalization, Other)
  Sender: FDA-Public Use
  Company Number: US-BAYER-2011-028213

PATIENT
  Age: 28 Year
  Sex: Female
  Weight: 86.621 kg

DRUGS (7)
  1. IBUPROFEN [Concomitant]
  2. CEPHALEXIN [Concomitant]
  3. MEDROXYPROGESTERONE ACETATE [Concomitant]
  4. SINGULAIR [Concomitant]
     Indication: MULTIPLE ALLERGIES
  5. DROSPIRENONE AND ETHINYL ESTRADIOL [Suspect]
     Indication: PRODUCT USED FOR UNKNOWN INDICATION
  6. HYDROCHLOROTHIAZIDE [Concomitant]
  7. APTOS [Concomitant]
     Indication: DIABETES MELLITUS

REACTIONS (11)
  - PAIN [None]
  - ANXIETY [None]
  - CHOLELITHIASIS [None]
  - GENERAL PHYSICAL HEALTH DETERIORATION [None]
  - BILE DUCT STONE [None]
  - ASTHENIA [None]
  - ANHEDONIA [None]
  - CHOLECYSTITIS ACUTE [None]
  - FATIGUE [None]
  - INJURY [None]
  - GALLBLADDER NON-FUNCTIONING [None]
